FAERS Safety Report 6626295-1 (Version None)
Quarter: 2010Q1

REPORT INFORMATION
  Report Type: 
  Country: None (occurrence: None)
  Receive Date: 20100309
  Receipt Date: 20100309
  Transmission Date: 20100710
  Serious: Yes (Hospitalization)
  Sender: FDA-Public Use
  Company Number: None

PATIENT
  Sex: Male
  Weight: 49.8957 kg

DRUGS (1)
  1. RISPERDAL [Suspect]
     Indication: PSYCHOTIC DISORDER
     Dosage: 1.5MG DAILY PO
     Route: 048
     Dates: start: 20050101, end: 20080401

REACTIONS (4)
  - BLOOD PRESSURE INCREASED [None]
  - MUSCLE CONTRACTURE [None]
  - NEUROLEPTIC MALIGNANT SYNDROME [None]
  - TENDON OPERATION [None]
